FAERS Safety Report 18243432 (Version 2)
Quarter: 2020Q3

REPORT INFORMATION
  Report Type: Spontaneous
  Country: US (occurrence: US)
  Receive Date: 20200908
  Receipt Date: 20200920
  Transmission Date: 20201103
  Serious: Yes (Hospitalization)
  Sender: FDA-Public Use
  Company Number: US-TEVA-2020-US-1824717

PATIENT
  Age: 13 Year
  Sex: Female

DRUGS (4)
  1. LORAZEPAM. [Suspect]
     Active Substance: LORAZEPAM
     Indication: SEIZURE
     Dosage: MULTIPLE DOSES
     Route: 065
  2. FLUOXETINE [Concomitant]
     Active Substance: FLUOXETINE HYDROCHLORIDE
     Indication: DEPRESSION
     Route: 065
  3. DIPHENHYDRAMINE. [Suspect]
     Active Substance: DIPHENHYDRAMINE
     Indication: PRODUCT USED FOR UNKNOWN INDICATION
     Route: 065
  4. TETRAHYDROCANNABINOL [Suspect]
     Active Substance: DRONABINOL
     Route: 065

REACTIONS (10)
  - Seizure [Recovered/Resolved]
  - Hyperchloraemia [Recovered/Resolved]
  - Hypertension [Recovered/Resolved]
  - Tachycardia [Recovered/Resolved]
  - Tremor [Recovered/Resolved]
  - Hallucination [Recovered/Resolved]
  - Hypokalaemia [Recovered/Resolved]
  - Toxicity to various agents [Recovered/Resolved]
  - Confusional state [Recovered/Resolved]
  - Overdose [Unknown]
